FAERS Safety Report 4360860-X (Version None)
Quarter: 2004Q2

REPORT INFORMATION
  Report Type: 
  Country: None (occurrence: None)
  Receive Date: 20040520
  Receipt Date: 20040420
  Transmission Date: 20050107
  Serious: Yes (Other)
  Sender: FDA-Public Use
  Company Number: JP-BRISTOL-MYERS SQUIBB COMPANY-12569455

PATIENT
  Age: 59 Year
  Sex: Female

DRUGS (1)
  1. GATIFLO TABS 100 MG [Suspect]
     Indication: OTITIS MEDIA
     Route: 048
     Dates: start: 20040419, end: 20040420

REACTIONS (1)
  - HYPOGLYCAEMIA [None]
